FAERS Safety Report 4362050-3 (Version None)
Quarter: 2004Q2

REPORT INFORMATION
  Report Type: 
  Country: None (occurrence: None)
  Receive Date: 20040521
  Receipt Date: 20040225
  Transmission Date: 20050107
  Serious: No
  Sender: FDA-Public Use
  Company Number: US-GLAXOSMITHKLINE-A0499853A

PATIENT
  Age: 60 Year
  Sex: Female

DRUGS (6)
  1. WELLBUTRIN XL [Suspect]
     Indication: DEPRESSION
     Dosage: 450MG PER DAY
     Route: 048
     Dates: start: 20040112, end: 20040115
  2. PREMARIN [Concomitant]
  3. SYNTHROID [Concomitant]
  4. MERIDIA [Concomitant]
  5. KLONOPIN [Concomitant]
  6. HYZAAR [Concomitant]

REACTIONS (1)
  - BLOOD PRESSURE INCREASED [None]
